FAERS Safety Report 9068587 (Version 2)
Quarter: 2013Q1

REPORT INFORMATION
  Report Type: Spontaneous
  Country: JP (occurrence: JP)
  Receive Date: 20130128
  Receipt Date: 20130214
  Transmission Date: 20140127
  Serious: Yes (Life-Threatening)
  Sender: FDA-Public Use
  Company Number: JP-ROCHE-1180189

PATIENT
  Age: 49 Year
  Sex: Male
  Weight: 82 kg

DRUGS (14)
  1. AVASTIN [Suspect]
     Indication: LUNG ADENOCARCINOMA METASTATIC
     Route: 041
     Dates: start: 20120530, end: 20120810
  2. AVASTIN [Suspect]
     Indication: LUNG ADENOCARCINOMA METASTATIC
     Route: 041
     Dates: start: 20121002
  3. CARBOPLATIN [Concomitant]
     Indication: LUNG ADENOCARCINOMA METASTATIC
     Route: 041
     Dates: start: 20120530, end: 20120810
  4. CARBOPLATIN [Concomitant]
     Indication: LUNG ADENOCARCINOMA METASTATIC
     Route: 041
     Dates: start: 20121002
  5. ALIMTA [Concomitant]
     Indication: LUNG ADENOCARCINOMA METASTATIC
     Route: 041
     Dates: start: 20120530, end: 20120810
  6. ALIMTA [Concomitant]
     Indication: LUNG ADENOCARCINOMA METASTATIC
     Route: 041
     Dates: start: 20121002
  7. MEDICON [Concomitant]
     Indication: SUPPORTIVE CARE
     Route: 048
     Dates: start: 20111213
  8. MUCOSOLVAN [Concomitant]
     Indication: SUPPORTIVE CARE
     Route: 048
     Dates: start: 20111213
  9. LOXONIN [Concomitant]
     Indication: PAIN
     Route: 048
     Dates: start: 20120105
  10. MUCOSTA [Concomitant]
     Indication: PAIN
     Route: 048
     Dates: start: 20120105
  11. CALONAL [Concomitant]
     Indication: PAIN
     Route: 048
     Dates: start: 20120131
  12. TAKEPRON [Concomitant]
     Indication: PROPHYLAXIS
     Route: 048
     Dates: start: 20120306
  13. PREDONINE [Concomitant]
     Indication: INTERSTITIAL LUNG DISEASE
     Route: 048
     Dates: start: 20120309
  14. ACECOL [Concomitant]
     Indication: SUPPORTIVE CARE
     Route: 048
     Dates: start: 20120329

REACTIONS (3)
  - Portal hypertension [Unknown]
  - Oesophageal varices haemorrhage [Recovered/Resolved]
  - Normochromic normocytic anaemia [Recovering/Resolving]
